FAERS Safety Report 25649060 (Version 1)
Quarter: 2025Q3

REPORT INFORMATION
  Report Type: Other
  Country: US (occurrence: US)
  Receive Date: 20250806
  Receipt Date: 20250806
  Transmission Date: 20251021
  Serious: Yes (Other)
  Sender: ANI
  Company Number: US-ANIPHARMA-023938

PATIENT
  Age: 18 Year
  Sex: Male

DRUGS (11)
  1. PROPRANOLOL [Suspect]
     Active Substance: PROPRANOLOL HYDROCHLORIDE
     Indication: Akathisia
  2. RISPERIDONE [Suspect]
     Active Substance: RISPERIDONE
     Indication: Schizophrenia
  3. ARIPIPRAZOLE [Concomitant]
     Active Substance: ARIPIPRAZOLE
     Indication: Schizophrenia
  4. BENZTROPINE [Concomitant]
     Active Substance: BENZTROPINE
     Indication: Akathisia
  5. Xanomeline/Trospium chloride [Concomitant]
     Indication: Schizophrenia
  6. ONDANSETRON [Concomitant]
     Active Substance: ONDANSETRON
     Indication: Nausea
  7. ONDANSETRON [Concomitant]
     Active Substance: ONDANSETRON
     Indication: Vomiting
  8. ONDANSETRON [Concomitant]
     Active Substance: ONDANSETRON
     Indication: Diarrhoea
  9. Xanomeline/Trospium chloride [Concomitant]
     Indication: Schizophrenia
  10. Xanomeline/Trospium chloride [Concomitant]
     Indication: Schizophrenia
  11. ARIPIPRAZOLE [Concomitant]
     Active Substance: ARIPIPRAZOLE
     Indication: Schizophrenia

REACTIONS (4)
  - Dystonia [Unknown]
  - Gynaecomastia [Unknown]
  - Weight increased [Unknown]
  - Therapy non-responder [Unknown]
